FAERS Safety Report 6372745-8 (Version None)
Quarter: 2009Q3

REPORT INFORMATION
  Report Type: 
  Country: None (occurrence: None)
  Receive Date: 20090924
  Receipt Date: 20081104
  Transmission Date: 20100115
  Serious: Yes (Other)
  Sender: FDA-Public Use
  Company Number: US-ASTRAZENECA-2008UW24625

PATIENT
  Sex: Male

DRUGS (4)
  1. SEROQUEL [Suspect]
     Dosage: 200 MG IN MORNING; 100 MG AFTERNOON; 300 MG AT NIGHT
     Route: 048
     Dates: start: 20070101
  2. DEPAKOTE [Concomitant]
  3. SYNTHROID [Concomitant]
  4. GENERIC COGENTIN [Concomitant]

REACTIONS (3)
  - DYSPNOEA [None]
  - HALLUCINATION [None]
  - HEART RATE DECREASED [None]
